FAERS Safety Report 19949966 (Version 1)
Quarter: 2021Q4

REPORT INFORMATION
  Report Type: Spontaneous
  Country: RO (occurrence: RO)
  Receive Date: 20211013
  Receipt Date: 20211013
  Transmission Date: 20220303
  Serious: Yes (Life-Threatening)
  Sender: FDA-Public Use
  Company Number: RO-AMGEN-ROUSP2021153673

PATIENT
  Age: 52 Year
  Sex: Male

DRUGS (6)
  1. VECTIBIX [Suspect]
     Active Substance: PANITUMUMAB
     Indication: Colorectal cancer metastatic
     Dosage: 6 MILLIGRAM/KILOGRAM, Q2WK
     Route: 042
     Dates: start: 202007
  2. LEUCOVORIN [Concomitant]
     Active Substance: LEUCOVORIN
     Indication: Colorectal cancer metastatic
     Dosage: UNK
     Dates: start: 202007
  3. FLUOROURACIL [Concomitant]
     Active Substance: FLUOROURACIL
     Indication: Colorectal cancer metastatic
     Dosage: UNK
     Dates: start: 202007
  4. IRINOTECAN [Concomitant]
     Active Substance: IRINOTECAN
     Indication: Colorectal cancer metastatic
     Dosage: UNK
     Dates: start: 202007
  5. DOXYCYCLINE [Concomitant]
     Active Substance: DOXYCYCLINE
     Indication: Prophylaxis
     Dosage: 200 MILLIGRAM, QD
     Dates: start: 202007
  6. DOXYCYCLINE [Concomitant]
     Active Substance: DOXYCYCLINE
     Dosage: 100 MILLIGRAM, QD

REACTIONS (2)
  - Skin toxicity [Unknown]
  - Rash [Unknown]
